FAERS Safety Report 20991659 (Version 1)
Quarter: 2022Q2

REPORT INFORMATION
  Report Type: Report from Study
  Country: US (occurrence: US)
  Receive Date: 20220622
  Receipt Date: 20220622
  Transmission Date: 20220721
  Serious: No
  Sender: FDA-Public Use
  Company Number: US-CELGENE-USA-20210504122

PATIENT
  Age: 82 Year
  Sex: Male
  Weight: 79.3 kg

DRUGS (19)
  1. POMALIDOMIDE [Suspect]
     Active Substance: POMALIDOMIDE
     Indication: Plasma cell myeloma
     Dosage: 2 MILLIGRAM
     Route: 048
     Dates: start: 20201016
  2. POMALIDOMIDE [Suspect]
     Active Substance: POMALIDOMIDE
     Route: 048
     Dates: start: 20220204
  3. REVLIMID [Suspect]
     Active Substance: LENALIDOMIDE
     Indication: Product used for unknown indication
     Dosage: 25 MILLIGRAM
     Route: 048
     Dates: start: 201202
  4. REVLIMID [Suspect]
     Active Substance: LENALIDOMIDE
     Dosage: 25 MILLIGRAM
     Route: 048
     Dates: start: 201208
  5. REVLIMID [Suspect]
     Active Substance: LENALIDOMIDE
     Dosage: 10-5 MG
     Route: 048
     Dates: start: 201211
  6. REVLIMID [Suspect]
     Active Substance: LENALIDOMIDE
     Dosage: 5-10 MG
     Route: 048
     Dates: start: 201909
  7. REVLIMID [Suspect]
     Active Substance: LENALIDOMIDE
     Dosage: 5 MILLIGRAM
     Route: 048
     Dates: start: 202008
  8. DEXAMETHASONE [Suspect]
     Active Substance: DEXAMETHASONE
     Indication: Product used for unknown indication
     Dosage: FREQUENCY TEXT: NOT PROVIDED
     Route: 065
  9. NINLARO [Suspect]
     Active Substance: IXAZOMIB CITRATE
     Indication: Product used for unknown indication
     Dosage: FREQUENCY TEXT: NOT PROVIDED
     Route: 065
  10. POTASSIUM [Concomitant]
     Active Substance: POTASSIUM
     Indication: Product used for unknown indication
  11. SINGULAIR [Concomitant]
     Active Substance: MONTELUKAST SODIUM
     Indication: Product used for unknown indication
  12. FLOMAX [Concomitant]
     Active Substance: TAMSULOSIN HYDROCHLORIDE
     Indication: Product used for unknown indication
  13. FINASTERIDE [Concomitant]
     Active Substance: FINASTERIDE
     Indication: Product used for unknown indication
  14. TYLENOL [Concomitant]
     Active Substance: ACETAMINOPHEN
     Indication: Product used for unknown indication
  15. VITAMIN D [Concomitant]
     Active Substance: VITAMIN D NOS
     Indication: Product used for unknown indication
  16. PROBIOTICS NOS [Concomitant]
     Active Substance: PROBIOTICS NOS
     Indication: Product used for unknown indication
  17. ASPIRIN [Concomitant]
     Active Substance: ASPIRIN
     Indication: Product used for unknown indication
  18. LOPRESSOR [Concomitant]
     Active Substance: METOPROLOL TARTRATE
     Indication: Product used for unknown indication
  19. DARZALEX [Concomitant]
     Active Substance: DARATUMUMAB
     Indication: Product used for unknown indication

REACTIONS (2)
  - Rash [Not Recovered/Not Resolved]
  - Blood pressure increased [Not Recovered/Not Resolved]
